FAERS Safety Report 19448693 (Version 1)
Quarter: 2021Q2

REPORT INFORMATION
  Report Type: Spontaneous
  Country: IT (occurrence: IT)
  Receive Date: 20210622
  Receipt Date: 20210622
  Transmission Date: 20210717
  Serious: Yes (Hospitalization, Other)
  Sender: FDA-Public Use
  Company Number: IT-ALVOGEN-2021-ALVOGEN-117112

PATIENT
  Age: 3 Year
  Sex: Female
  Weight: 15 kg

DRUGS (1)
  1. FENTANYL. [Suspect]
     Active Substance: FENTANYL
     Indication: WOUND
     Route: 062

REACTIONS (4)
  - Vomiting [Recovered/Resolved]
  - Lethargy [Recovered/Resolved]
  - Syncope [Recovered/Resolved]
  - Accidental exposure to product by child [Recovered/Resolved]
